FAERS Safety Report 16938434 (Version 1)
Quarter: 2019Q4

REPORT INFORMATION
  Report Type: Spontaneous
  Country: US (occurrence: US)
  Receive Date: 20190828
  Receipt Date: 20190828
  Transmission Date: 20200122
  Serious: Yes (Hospitalization, Other)
  Sender: FDA-Public Use
  Company Number: None

PATIENT

DRUGS (2)
  1. LATANOPROST. [Concomitant]
     Active Substance: LATANOPROST
  2. LISINOPRIL 10MG TABLETS [Suspect]
     Active Substance: LISINOPRIL
     Dosage: ?          QUANTITY:T IN CASE?3 NOT SEND;?
     Route: 048
     Dates: end: 20190612

REACTIONS (2)
  - Dehydration [None]
  - Renal disorder [None]

NARRATIVE: CASE EVENT DATE: 20190612
